FAERS Safety Report 10882751 (Version 2)
Quarter: 2015Q2

REPORT INFORMATION
  Report Type: Spontaneous
  Country: US (occurrence: US)
  Receive Date: 20150303
  Receipt Date: 20150506
  Transmission Date: 20150821
  Serious: No
  Sender: FDA-Public Use
  Company Number: US-GLAXOSMITHKLINE-US2015GSK015914

PATIENT
  Age: 76 Year
  Sex: Male

DRUGS (7)
  1. RICOLA COUGH DROPS [Concomitant]
     Active Substance: HERBALS\MENTHOL
  2. ADVAIR DISKUS [Suspect]
     Active Substance: FLUTICASONE PROPIONATE\SALMETEROL XINAFOATE
     Indication: DYSPNOEA
     Dosage: 1 PUFF(S), BID
     Route: 055
     Dates: start: 2013
  3. HALLS COUGH DROPS [Concomitant]
  4. DELSYM [Concomitant]
     Active Substance: DEXTROMETHORPHAN
  5. TYLENOL [Concomitant]
     Active Substance: ACETAMINOPHEN
  6. VENTOLIN HFA [Concomitant]
     Active Substance: ALBUTEROL SULFATE
     Dosage: UNK, QID
  7. ADVAIR DISKUS [Suspect]
     Active Substance: FLUTICASONE PROPIONATE\SALMETEROL XINAFOATE
     Indication: BRONCHIAL DISORDER

REACTIONS (5)
  - Device use error [Unknown]
  - Extra dose administered [Unknown]
  - Product quality issue [Unknown]
  - Dyspnoea exertional [Not Recovered/Not Resolved]
  - Drug ineffective [Not Recovered/Not Resolved]

NARRATIVE: CASE EVENT DATE: 20150201
